FAERS Safety Report 5572971-1 (Version None)
Quarter: 2007Q4

REPORT INFORMATION
  Report Type: 
  Country: None (occurrence: None)
  Receive Date: 20071224
  Receipt Date: 20071213
  Transmission Date: 20080405
  Serious: Yes (Life-Threatening)
  Sender: FDA-Public Use
  Company Number: JP-BRISTOL-MYERS SQUIBB COMPANY-13968490

PATIENT
  Age: 79 Year
  Sex: Male

DRUGS (16)
  1. RESLIN [Suspect]
     Indication: DEPRESSION
     Route: 048
     Dates: start: 20071009, end: 20071014
  2. RESLIN [Suspect]
     Indication: ANOREXIA
     Route: 048
     Dates: start: 20071009, end: 20071014
  3. RESLIN [Suspect]
     Indication: ANXIETY
     Route: 048
     Dates: start: 20071009, end: 20071014
  4. DOGMATYL [Suspect]
     Indication: DEPRESSION
     Route: 048
     Dates: start: 20071009, end: 20071014
  5. DOGMATYL [Suspect]
     Indication: ANOREXIA
     Route: 048
     Dates: start: 20071009, end: 20071014
  6. DOGMATYL [Suspect]
     Indication: ANXIETY
     Route: 048
     Dates: start: 20071009, end: 20071014
  7. PAXIL [Suspect]
     Indication: DEPRESSION
     Route: 048
     Dates: start: 20071009, end: 20071014
  8. PAXIL [Suspect]
     Indication: ANOREXIA
     Route: 048
     Dates: start: 20071009, end: 20071014
  9. PAXIL [Suspect]
     Indication: ANXIETY
     Route: 048
     Dates: start: 20071009, end: 20071014
  10. MEILAX [Concomitant]
     Indication: DEPRESSION
     Route: 048
     Dates: start: 20071009
  11. MEILAX [Concomitant]
     Indication: ANOREXIA
     Route: 048
     Dates: start: 20071009
  12. MEILAX [Concomitant]
     Indication: ANXIETY
     Route: 048
     Dates: start: 20071009
  13. DEPAS [Concomitant]
  14. ARICEPT [Concomitant]
  15. ASPIRIN [Concomitant]
  16. NITOROL [Concomitant]

REACTIONS (4)
  - AGRANULOCYTOSIS [None]
  - DRUG TOXICITY [None]
  - PANCYTOPENIA [None]
  - SEPTIC SHOCK [None]
